FAERS Safety Report 16281416 (Version 2)
Quarter: 2019Q2

REPORT INFORMATION
  Report Type: Spontaneous
  Country: US (occurrence: US)
  Receive Date: 20190507
  Receipt Date: 20190604
  Transmission Date: 20190711
  Serious: No
  Sender: FDA-Public Use
  Company Number: US-PFIZER INC-2019186790

PATIENT
  Age: 66 Year
  Sex: Female
  Weight: 75 kg

DRUGS (1)
  1. IBRANCE [Suspect]
     Active Substance: PALBOCICLIB
     Indication: BREAST CANCER FEMALE
     Dosage: 125 MG, CYCLIC (ONCE DAILY BY MOUTH, 21 DAYS ON, THEN OFF 7), (ONCE A DAY FOR 3 WEEKS)
     Route: 048
     Dates: start: 201807, end: 201904

REACTIONS (6)
  - Blood creatinine increased [Recovered/Resolved]
  - Renal disorder [Recovered/Resolved]
  - Ear pain [Unknown]
  - Sinusitis [Recovered/Resolved]
  - Toothache [Recovered/Resolved]
  - White blood cell count decreased [Recovered/Resolved]

NARRATIVE: CASE EVENT DATE: 201903
